FAERS Safety Report 7812370-2 (Version None)
Quarter: 2011Q4

REPORT INFORMATION
  Report Type: 
  Country: None (occurrence: None)
  Receive Date: 20111013
  Receipt Date: 20111005
  Transmission Date: 20120403
  Serious: Yes (Other)
  Sender: FDA-Public Use
  Company Number: JP-GLAXOSMITHKLINE-B0753587A

PATIENT
  Age: 3 Decade
  Sex: Female

DRUGS (3)
  1. LAMICTAL [Suspect]
     Indication: BIPOLAR DISORDER
     Route: 048
     Dates: start: 20110901
  2. LITHIUM CARBONATE [Concomitant]
     Route: 048
  3. UNKNOWN DRUG [Concomitant]
     Route: 048

REACTIONS (5)
  - RUBELLA [None]
  - RASH [None]
  - PRURITUS [None]
  - ARTHRALGIA [None]
  - PYREXIA [None]
